FAERS Safety Report 5011990-0 (Version None)
Quarter: 2006Q2

REPORT INFORMATION
  Report Type: 
  Country: None (occurrence: None)
  Receive Date: 20060524
  Receipt Date: 20060511
  Transmission Date: 20061013
  Serious: Yes (Death)
  Sender: FDA-Public Use
  Company Number: 224276

PATIENT
  Age: 70 Year
  Sex: Female

DRUGS (12)
  1. RITUXIMAB(RITUXIMAB) CONC FOR SOLUTION FOR INFUSION [Suspect]
     Indication: CHRONIC LYMPHOCYTIC LEUKAEMIA
     Dosage: 700 MG, Q28D, INTRAVENOUS
     Route: 042
     Dates: start: 20060411, end: 20060411
  2. FLUDARABINE [Suspect]
     Indication: CHRONIC LYMPHOCYTIC LEUKAEMIA
     Dosage: 40 MG, Q28D, INTRAVENOUS
     Route: 042
     Dates: start: 20060412, end: 20060414
  3. CYCLOPHOSPHAMIDE [Suspect]
     Indication: CHRONIC LYMPHOCYTIC LEUKAEMIA
     Dosage: 400 MG, Q28D,  INTRAVENOUS
     Route: 042
     Dates: start: 20060412, end: 20060414
  4. SUMETROLIM (SULFAMETHOXAZOLE, TRIMETHOPRIM) [Concomitant]
  5. SETRON (ONDANSETRON) [Concomitant]
  6. ACICLOVIRUM (ACYCLOVIR) [Concomitant]
  7. FAMOTIDINE [Concomitant]
  8. CLOPAMID (CLOPAMIDE) [Concomitant]
  9. ALLOPURINOL [Concomitant]
  10. KALIUM (POTASSIUM NOS) [Concomitant]
  11. METHYLPREDNISOLONE [Concomitant]
  12. CLEMASTINUM (CLEMASTINE) [Concomitant]

REACTIONS (2)
  - GASTRIC HAEMORRHAGE [None]
  - LEFT VENTRICULAR FAILURE [None]
